FAERS Safety Report 9334722 (Version 4)
Quarter: 2013Q3

REPORT INFORMATION
  Report Type: Report from Study
  Country: US (occurrence: US)
  Receive Date: 20130606
  Receipt Date: 20130918
  Transmission Date: 20140515
  Serious: Yes (Life-Threatening)
  Sender: FDA-Public Use
  Company Number: US-009507513-1306USA001556

PATIENT
  Age: 64 Year
  Sex: Male
  Weight: 65.2 kg

DRUGS (18)
  1. VORINOSTAT [Suspect]
     Indication: DIFFUSE LARGE B-CELL LYMPHOMA
     Dosage: 400 MG, QD ON DAYS 1-5
     Route: 048
     Dates: start: 20130510, end: 20130514
  2. VORINOSTAT [Suspect]
     Dosage: QD ON DAYS 1-5
     Route: 048
     Dates: start: 20130603, end: 20130608
  3. VORINOSTAT [Suspect]
     Dosage: 400 MG, QD ON DAYS 1-5
     Route: 048
     Dates: start: 20130826, end: 20130830
  4. RITUXIMAB [Suspect]
     Indication: DIFFUSE LARGE B-CELL LYMPHOMA
     Dosage: 375 MG/M2, ON DAY 3
     Route: 042
     Dates: start: 20130512, end: 20130512
  5. RITUXIMAB [Suspect]
     Dosage: 375 MG/M2, ON DAY 3
     Route: 042
     Dates: start: 20130606, end: 20130606
  6. RITUXIMAB [Suspect]
     Dosage: 375 MG/M2, ON DAY 3
     Route: 042
     Dates: start: 20130828, end: 20130828
  7. CYCLOPHOSPHAMIDE [Suspect]
     Indication: DIFFUSE LARGE B-CELL LYMPHOMA
     Dosage: 750 MG/M2, OVER 30-60 MINUTES ON DAY 3
     Route: 042
     Dates: start: 20130512, end: 20130512
  8. CYCLOPHOSPHAMIDE [Suspect]
     Dosage: 750 MG/M2, OVER 30-60 MINUTES ON DAY 3
     Route: 042
     Dates: start: 20130606, end: 20130606
  9. CYCLOPHOSPHAMIDE [Suspect]
     Dosage: 750 MG/M2, OVER 30-60 MINUTES ON DAY 3
     Route: 042
     Dates: start: 20130828, end: 20130828
  10. DOXORUBICIN [Suspect]
     Indication: DIFFUSE LARGE B-CELL LYMPHOMA
     Dosage: 50 MG/M2, ON DAY 3
     Route: 041
     Dates: start: 20130512, end: 20130512
  11. DOXORUBICIN [Suspect]
     Dosage: 50 MG/M2, ON DAY 3
     Route: 041
     Dates: start: 20130606, end: 20130606
  12. DOXORUBICIN [Suspect]
     Dosage: 50 MG/M2, ON DAY 3
     Route: 041
     Dates: start: 20130828, end: 20130828
  13. VINCRISTINE [Suspect]
     Indication: DIFFUSE LARGE B-CELL LYMPHOMA
     Dosage: 1.4 MG/M2, ON DAY 3
     Route: 041
     Dates: start: 20130512, end: 20130512
  14. VINCRISTINE [Suspect]
     Dosage: 1.4 MG/M2, ON DAY 3
     Route: 041
     Dates: start: 20130606, end: 20130606
  15. VINCRISTINE [Suspect]
     Dosage: 1.4 MG/M2, ON DAY 3
     Route: 041
     Dates: start: 20130828, end: 20130828
  16. PREDNISONE [Suspect]
     Indication: DIFFUSE LARGE B-CELL LYMPHOMA
     Dosage: 100 MG, QD ON DAYS 3-7
     Route: 048
     Dates: start: 20130512, end: 20130516
  17. PREDNISONE [Suspect]
     Dosage: 100 MG, QD ON DAYS 3-7
     Route: 048
     Dates: start: 20130606, end: 20130610
  18. PREDNISONE [Suspect]
     Dosage: 100 MG, QD ON DAYS 3-7
     Route: 048
     Dates: start: 20130828, end: 20130901

REACTIONS (4)
  - Lymphocyte count decreased [Recovered/Resolved]
  - Neutrophil count decreased [Recovered/Resolved]
  - White blood cell count decreased [Recovered/Resolved]
  - Platelet count decreased [Recovering/Resolving]
